FAERS Safety Report 9927044 (Version 1)
Quarter: 2014Q1

REPORT INFORMATION
  Report Type: Spontaneous
  Country: US (occurrence: US)
  Receive Date: 20140226
  Receipt Date: 20140226
  Transmission Date: 20141002
  Serious: No
  Sender: FDA-Public Use
  Company Number: US-AMGEN-USASP2014000617

PATIENT
  Age: 79 Year
  Sex: Female

DRUGS (17)
  1. ENBREL [Suspect]
     Indication: PSORIATIC ARTHROPATHY
     Dosage: 50 MG, QWK
     Route: 058
     Dates: start: 200909
  2. APEXICON [Concomitant]
     Dosage: 0.05%
  3. KRILL OIL [Concomitant]
     Dosage: 1000 MG, UNK
  4. METOPROLOL SUCCINATE [Concomitant]
     Dosage: 50 MG, UNK
  5. CALCIUM +D                         /00944201/ [Concomitant]
     Dosage: UNK
  6. ZETIA [Concomitant]
     Dosage: 10 MG, UNK
  7. ASPIRIN [Concomitant]
     Dosage: 81 MG, UNK
  8. VITAMIN E                          /00110501/ [Concomitant]
     Dosage: 1000 UNIT, UNK
  9. VITAMIN D                          /00107901/ [Concomitant]
     Dosage: 2000 UNIT, UNK
  10. COLACE-T [Concomitant]
     Dosage: 100 MG, UNK
  11. SIMPONI [Concomitant]
     Dosage: UNK
  12. PREMARIN [Concomitant]
     Dosage: 0.3 MG, UNK
  13. FOLIC ACID [Concomitant]
     Dosage: 1 MG, UNK
  14. PRILOSEC                           /00661201/ [Concomitant]
     Dosage: 20 MG, UNK
  15. NEXIUM                             /01479302/ [Concomitant]
     Dosage: 40 MG, UNK
  16. CLONIDINE HCL [Concomitant]
     Dosage: 0.2 MG, UNK
  17. ALLOPURINOL [Concomitant]
     Dosage: 100 MG, UNK

REACTIONS (1)
  - Drug ineffective [Unknown]
